FAERS Safety Report 6671725-2 (Version None)
Quarter: 2010Q2

REPORT INFORMATION
  Report Type: 
  Country: None (occurrence: None)
  Receive Date: 20100407
  Receipt Date: 20100407
  Transmission Date: 20101027
  Serious: Yes (Hospitalization, Disabling)
  Sender: FDA-Public Use
  Company Number: PHHO2007RU01669

PATIENT
  Sex: Female
  Weight: 45 kg

DRUGS (4)
  1. ACLASTA/ZOLEDRONATE T29581+A+SOLINJ [Suspect]
     Indication: OSTEOPOROSIS POSTMENOPAUSAL
     Dosage: 5 MG ONCE A YEAR
     Route: 042
     Dates: start: 20060413
  2. CALCIUM [Concomitant]
     Indication: OSTEOPOROSIS POSTMENOPAUSAL
  3. VITAMIN D [Concomitant]
     Indication: OSTEOPOROSIS POSTMENOPAUSAL
  4. DICLOFENAC [Concomitant]
     Indication: OSTEOCHONDROSIS
     Dosage: 50 MG, QD
     Route: 048
     Dates: start: 20040715

REACTIONS (4)
  - OSTEITIS [None]
  - OSTEOMYELITIS [None]
  - PAIN IN JAW [None]
  - SEQUESTRECTOMY [None]
